FAERS Safety Report 12103077 (Version 2)
Quarter: 2016Q1

REPORT INFORMATION
  Report Type: Spontaneous
  Country: NL (occurrence: NL)
  Receive Date: 20160222
  Receipt Date: 20160303
  Transmission Date: 20160526
  Serious: Yes (Life-Threatening)
  Sender: FDA-Public Use
  Company Number: NL-TEVA-634620ACC

PATIENT
  Age: 54 Year
  Sex: Male
  Weight: 83 kg

DRUGS (1)
  1. IBUPROFEN TABLET 600MG [Suspect]
     Active Substance: IBUPROFEN
     Indication: BACK PAIN
     Dosage: EVERY TIME, PIECE(S). AS REQUIRED
     Route: 048
     Dates: start: 20120918, end: 20120918

REACTIONS (2)
  - Choking [Recovered/Resolved]
  - Product quality issue [Recovered/Resolved]

NARRATIVE: CASE EVENT DATE: 20120918
